FAERS Safety Report 25129416 (Version 2)
Quarter: 2025Q2

REPORT INFORMATION
  Report Type: Report from Study
  Country: CA (occurrence: CA)
  Receive Date: 20250327
  Receipt Date: 20250515
  Transmission Date: 20250716
  Serious: Yes (Disabling)
  Sender: BIOCON
  Company Number: CA-MIMS-BCONMC-12436

PATIENT

DRUGS (5)
  1. HULIO [Suspect]
     Active Substance: ADALIMUMAB-FKJP
     Indication: Rheumatoid arthritis
     Route: 058
     Dates: start: 20250205
  2. HULIO [Suspect]
     Active Substance: ADALIMUMAB-FKJP
  3. HULIO [Suspect]
     Active Substance: ADALIMUMAB-FKJP
  4. 25-HYDROXYCHOLECALCIFEROL [Concomitant]
     Indication: Product used for unknown indication
     Route: 065
  5. DICLOFENAC [Concomitant]
     Active Substance: DICLOFENAC
     Indication: Arthralgia
     Route: 065
     Dates: start: 20220922

REACTIONS (6)
  - Loss of personal independence in daily activities [Unknown]
  - Arthralgia [Unknown]
  - Musculoskeletal discomfort [Unknown]
  - Abdominal distension [Unknown]
  - Weight increased [Unknown]
  - Dyspepsia [Unknown]
